FAERS Safety Report 23650932 (Version 1)
Quarter: 2024Q1

REPORT INFORMATION
  Report Type: Spontaneous
  Country: US (occurrence: US)
  Receive Date: 20240320
  Receipt Date: 20240320
  Transmission Date: 20240410
  Serious: No
  Sender: FDA-Public Use
  Company Number: US-SA-SAC20240315000448

PATIENT

DRUGS (1)
  1. DUPILUMAB [Suspect]
     Active Substance: DUPILUMAB
     Indication: Lichenoid keratosis
     Route: 058

REACTIONS (3)
  - Lichenoid keratosis [Unknown]
  - Condition aggravated [Unknown]
  - Product use in unapproved indication [Unknown]
